FAERS Safety Report 17142644 (Version 1)
Quarter: 2019Q4

REPORT INFORMATION
  Report Type: Spontaneous
  Country: US (occurrence: US)
  Receive Date: 20191119
  Receipt Date: 20191119
  Transmission Date: 20200122
  Serious: Yes (Hospitalization)
  Sender: FDA-Public Use
  Company Number: None

PATIENT
  Age: 71 Year
  Sex: Male

DRUGS (1)
  1. SULFAMETHIZOLE/TRIMETHOPRIM [Suspect]
     Active Substance: SULFAMETHIZOLE\TRIMETHOPRIM
     Indication: INFECTION
     Route: 048
     Dates: start: 20190416, end: 20190425

REACTIONS (5)
  - Asthenia [None]
  - Cellulitis [None]
  - Renal impairment [None]
  - Confusional state [None]
  - Dehydration [None]

NARRATIVE: CASE EVENT DATE: 20190423
